FAERS Safety Report 20706502 (Version 1)
Quarter: 2022Q2

REPORT INFORMATION
  Report Type: Spontaneous
  Country: US (occurrence: None)
  Receive Date: 20220413
  Receipt Date: 20220413
  Transmission Date: 20220721
  Serious: Yes (Other)
  Sender: FDA-Public Use
  Company Number: 2022A142723

PATIENT
  Age: 21665 Day
  Sex: Male
  Weight: 135.6 kg

DRUGS (25)
  1. OMEPRAZOLE [Suspect]
     Active Substance: OMEPRAZOLE
     Route: 065
     Dates: start: 20190213
  2. PROTONIX [Suspect]
     Active Substance: PANTOPRAZOLE SODIUM
     Route: 065
     Dates: start: 20100618
  3. PROTONIX [Suspect]
     Active Substance: PANTOPRAZOLE SODIUM
     Dosage: GENERIC
     Route: 065
  4. PROTONIX [Suspect]
     Active Substance: PANTOPRAZOLE SODIUM
     Route: 065
     Dates: start: 20180323
  5. PRINIVIL [Concomitant]
     Active Substance: LISINOPRIL
     Dates: start: 20180323
  6. ZANTAC [Concomitant]
     Active Substance: RANITIDINE HYDROCHLORIDE
     Dates: start: 20180323
  7. ZEGERID [Concomitant]
     Active Substance: OMEPRAZOLE\SODIUM BICARBONATE
     Dates: start: 20180402
  8. METOPROLOL TARTRATE [Concomitant]
     Active Substance: METOPROLOL TARTRATE
     Dates: start: 20180323
  9. CHANTIX [Concomitant]
     Active Substance: VARENICLINE TARTRATE
     Dates: start: 20180323
  10. FLOMAX [Concomitant]
     Active Substance: TAMSULOSIN HYDROCHLORIDE
     Dates: start: 20180504
  11. VIAGRA [Concomitant]
     Active Substance: SILDENAFIL CITRATE
     Dates: start: 20180615
  12. ZOLOFT [Concomitant]
     Active Substance: SERTRALINE HYDROCHLORIDE
     Dates: start: 20180615
  13. LEVAQUIN [Concomitant]
     Active Substance: LEVOFLOXACIN
     Dates: start: 20180615
  14. TORADOL [Concomitant]
     Active Substance: KETOROLAC TROMETHAMINE
     Dates: start: 20190103
  15. NORVASC [Concomitant]
     Active Substance: AMLODIPINE BESYLATE
     Dates: start: 20190131
  16. AUGMENTIN [Concomitant]
     Active Substance: AMOXICILLIN\CLAVULANATE POTASSIUM
     Dates: start: 20190131
  17. FLEXERIL [Concomitant]
     Active Substance: CYCLOBENZAPRINE HYDROCHLORIDE
     Dates: start: 20190117
  18. NICODERM CQ [Concomitant]
     Active Substance: NICOTINE
     Dates: start: 20190131
  19. PERCOCET [Concomitant]
     Active Substance: ACETAMINOPHEN\OXYCODONE HYDROCHLORIDE
     Dates: start: 20190213
  20. DELTASONE [Concomitant]
     Active Substance: PREDNISONE
     Dates: start: 20190213
  21. DECADRON [Concomitant]
     Active Substance: DEXAMETHASONE
     Dates: start: 20190708
  22. MELATONIN [Concomitant]
     Active Substance: MELATONIN
     Dates: start: 20190708
  23. VALTREX [Concomitant]
     Active Substance: VALACYCLOVIR HYDROCHLORIDE
     Dates: start: 20190523
  24. AMBIEN [Concomitant]
     Active Substance: ZOLPIDEM TARTRATE
     Dates: start: 20100618
  25. PROPOFOL [Concomitant]
     Active Substance: PROPOFOL
     Dates: start: 20141124

REACTIONS (5)
  - Acute kidney injury [Unknown]
  - Chronic kidney disease [Not Recovered/Not Resolved]
  - Hyperkalaemia [Unknown]
  - Renal failure [Unknown]
  - Tubulointerstitial nephritis [Unknown]

NARRATIVE: CASE EVENT DATE: 20190205
